FAERS Safety Report 5453089-5 (Version None)
Quarter: 2007Q3

REPORT INFORMATION
  Report Type: 
  Country: None (occurrence: None)
  Receive Date: 20070914
  Receipt Date: 20070904
  Transmission Date: 20080115
  Serious: Yes (Other)
  Sender: FDA-Public Use
  Company Number: US-PFIZER INC-2007060096

PATIENT
  Sex: Female
  Weight: 77.3 kg

DRUGS (3)
  1. CHANTIX [Suspect]
     Indication: EX-SMOKER
     Route: 048
  2. NAPROXEN [Concomitant]
  3. ALPRAZOLAM [Concomitant]

REACTIONS (3)
  - ABDOMINAL PAIN UPPER [None]
  - AGEUSIA [None]
  - OVARIAN CYST [None]
